FAERS Safety Report 15757580 (Version 2)
Quarter: 2019Q1

REPORT INFORMATION
  Report Type: Report from Study
  Country: None (occurrence: CO)
  Receive Date: 20181224
  Receipt Date: 20190322
  Transmission Date: 20190417
  Serious: Yes (Hospitalization, Other)
  Sender: FDA-Public Use
  Company Number: CO-ABBVIE-18S-036-2601831-00

PATIENT
  Age: 46 Year
  Sex: Male

DRUGS (2)
  1. ASPIRIN. [Concomitant]
     Active Substance: ASPIRIN
     Indication: PRODUCT USED FOR UNKNOWN INDICATION
  2. ZEMPLAR [Suspect]
     Active Substance: PARICALCITOL
     Indication: HYPERPARATHYROIDISM SECONDARY
     Dosage: POST-DIALYSIS
     Route: 042
     Dates: start: 20180521, end: 20181120

REACTIONS (5)
  - Medical device implantation [Recovering/Resolving]
  - Arteriovenous fistula site complication [Recovering/Resolving]
  - Hyperphosphataemia [Recovering/Resolving]
  - Fistula [Recovering/Resolving]
  - Haematoma [Recovering/Resolving]

NARRATIVE: CASE EVENT DATE: 201812
